FAERS Safety Report 15818874 (Version 1)
Quarter: 2019Q1

REPORT INFORMATION
  Report Type: Report from Study
  Country: None (occurrence: PR)
  Receive Date: 20190114
  Receipt Date: 20190114
  Transmission Date: 20190417
  Serious: Yes (Hospitalization, Other)
  Sender: FDA-Public Use
  Company Number: PR-ABBVIE-19K-131-2620544-00

PATIENT
  Age: 79 Year
  Sex: Male

DRUGS (1)
  1. HUMIRA [Suspect]
     Active Substance: ADALIMUMAB
     Indication: PSORIATIC ARTHROPATHY
     Route: 058
     Dates: start: 20100421

REACTIONS (2)
  - Renal disorder [Unknown]
  - Infarction [Unknown]

NARRATIVE: CASE EVENT DATE: 20181217
